FAERS Safety Report 23952555 (Version 1)
Quarter: 2024Q2

REPORT INFORMATION
  Report Type: Spontaneous
  Country: US (occurrence: None)
  Receive Date: 20240607
  Receipt Date: 20240607
  Transmission Date: 20240716
  Serious: Yes (Other)
  Sender: FDA-Public Use
  Company Number: None

PATIENT
  Age: 24 Year
  Sex: Female
  Weight: 108 kg

DRUGS (4)
  1. MONTELUKAST SODIUM [Suspect]
     Active Substance: MONTELUKAST SODIUM
     Indication: Seasonal allergy
     Dosage: 90 TABLETS DAILY ORAL
     Route: 048
     Dates: start: 20240605, end: 20240607
  2. JULEBER [Concomitant]
     Active Substance: DESOGESTREL\ETHINYL ESTRADIOL
  3. FLONASE [Concomitant]
     Active Substance: FLUTICASONE PROPIONATE
  4. CLARITIN [Concomitant]
     Active Substance: LORATADINE

REACTIONS (2)
  - Anxiety [None]
  - Product communication issue [None]

NARRATIVE: CASE EVENT DATE: 20240605
